FAERS Safety Report 10219598 (Version 1)
Quarter: 2014Q2

REPORT INFORMATION
  Report Type: Spontaneous
  Country: FR (occurrence: FR)
  Receive Date: 20140605
  Receipt Date: 20140605
  Transmission Date: 20141212
  Serious: Yes (Hospitalization)
  Sender: FDA-Public Use
  Company Number: FR-GLAXOSMITHKLINE-B0997600A

PATIENT
  Age: 54 Year
  Sex: Female

DRUGS (6)
  1. CLAMOXYL IV [Suspect]
     Indication: ENDOCARDITIS
     Dosage: 4G FOUR TIMES PER DAY
     Route: 042
     Dates: start: 20140222
  2. ZELITREX [Suspect]
     Indication: GENITAL HERPES
     Dosage: 500MG THREE TIMES PER DAY
     Route: 048
     Dates: start: 20140225, end: 20140302
  3. CEFOTAXIME [Concomitant]
     Dates: start: 201402, end: 201402
  4. AMIKLIN [Concomitant]
     Dates: start: 201402, end: 20140222
  5. CEFEPIME [Concomitant]
     Dates: start: 201402, end: 20140222
  6. ESIDREX [Concomitant]
     Indication: HYPERTENSION

REACTIONS (2)
  - Renal failure acute [Recovering/Resolving]
  - Renal tubular necrosis [Recovering/Resolving]
